FAERS Safety Report 14933784 (Version 1)
Quarter: 2018Q2

REPORT INFORMATION
  Report Type: Spontaneous
  Country: CN (occurrence: US)
  Receive Date: 20180524
  Receipt Date: 20180524
  Transmission Date: 20180711
  Serious: Yes (Life-Threatening, Other)
  Sender: FDA-Public Use
  Company Number: CN-ACCORD-067318

PATIENT
  Age: 1 Year
  Sex: Female

DRUGS (2)
  1. CISPLATIN. [Suspect]
     Active Substance: CISPLATIN
     Indication: SALIVARY GLAND NEOPLASM
     Dosage: 60-80 MG/M^2
  2. ETOPOSIDE. [Suspect]
     Active Substance: ETOPOSIDE
     Indication: SALIVARY GLAND NEOPLASM
     Dosage: 360-450 MG/M^2

REACTIONS (1)
  - Drug ineffective [Unknown]
